FAERS Safety Report 5230386-X (Version None)
Quarter: 2007Q1

REPORT INFORMATION
  Report Type: 
  Country: None (occurrence: None)
  Receive Date: 20070206
  Receipt Date: 20061110
  Transmission Date: 20070707
  Serious: No
  Sender: FDA-Public Use
  Company Number: US-GLAXOSMITHKLINE-A0367680A

PATIENT
  Age: 45 Year
  Sex: Female
  Weight: 61.8 kg

DRUGS (5)
  1. PAXIL [Suspect]
     Indication: OBSESSIVE-COMPULSIVE DISORDER
     Dosage: 28MG PER DAY
     Route: 048
     Dates: start: 20010201
  2. SYNTHROID [Concomitant]
  3. SOMA [Concomitant]
  4. THYROID TAB [Concomitant]
  5. CROMOLYN SODIUM [Concomitant]

REACTIONS (3)
  - PAIN [None]
  - SWELLING [None]
  - WEIGHT INCREASED [None]
